FAERS Safety Report 20085583 (Version 1)
Quarter: 2021Q4

REPORT INFORMATION
  Report Type: Spontaneous
  Country: US (occurrence: None)
  Receive Date: 20211117
  Receipt Date: 20211117
  Transmission Date: 20220303
  Serious: Yes (Other)
  Sender: FDA-Public Use
  Company Number: None

PATIENT
  Age: 42 Year
  Sex: Female
  Weight: 83.25 kg

DRUGS (5)
  1. TUBERSOL [Suspect]
     Active Substance: TUBERCULIN PURIFIED PROTEIN DERIVATIVE
     Indication: Mycobacterium tuberculosis complex test
     Dates: start: 20211117
  2. ZOLOFT [Concomitant]
     Active Substance: SERTRALINE HYDROCHLORIDE
  3. BENADRYL [Concomitant]
  4. PEPCID AC [Concomitant]
  5. ALEVE [Concomitant]

REACTIONS (6)
  - Throat tightness [None]
  - Headache [None]
  - Abdominal pain upper [None]
  - Pruritus [None]
  - Throat irritation [None]
  - Drug hypersensitivity [None]

NARRATIVE: CASE EVENT DATE: 20211117
